FAERS Safety Report 6008995-X (Version None)
Quarter: 2008Q4

REPORT INFORMATION
  Report Type: 
  Country: None (occurrence: None)
  Receive Date: 20081216
  Receipt Date: 20081202
  Transmission Date: 20090506
  Serious: Yes (Death, Life-Threatening, Hospitalization, Disabling)
  Sender: FDA-Public Use
  Company Number: 2008US003286

PATIENT
  Age: 39 Year
  Sex: Male

DRUGS (4)
  1. MYCAMINE [Suspect]
     Indication: ASPERGILLOSIS
     Dosage: 150 MG, UID/QD
     Dates: start: 20071019, end: 20071021
  2. MYCAMINE [Suspect]
     Indication: ASPERGILLOSIS
     Dosage: 150 MG, UID/QD
     Dates: start: 20071105, end: 20071202
  3. ABELCET [Concomitant]
  4. VFEND [Concomitant]

REACTIONS (5)
  - ACUTE GRAFT VERSUS HOST DISEASE IN LIVER [None]
  - ASPARTATE AMINOTRANSFERASE INCREASED [None]
  - BLOOD ALKALINE PHOSPHATASE INCREASED [None]
  - BLOOD BILIRUBIN INCREASED [None]
  - THERAPEUTIC RESPONSE UNEXPECTED [None]
